FAERS Safety Report 8165510-2 (Version None)
Quarter: 2012Q1

REPORT INFORMATION
  Report Type: 
  Country: None (occurrence: None)
  Receive Date: 20120227
  Receipt Date: 20120217
  Transmission Date: 20120608
  Serious: Yes (Hospitalization)
  Sender: FDA-Public Use
  Company Number: US-BAYER-201025298NA

PATIENT
  Age: 45 Year
  Sex: Female
  Weight: 63.2 kg

DRUGS (9)
  1. NITROFURANTOIN [Concomitant]
     Dosage: 100 MG, UNK
     Route: 048
     Dates: start: 20070529
  2. LEVOTHYROXINE SODIUM [Concomitant]
     Dosage: 0.125 MG, UNK
     Route: 048
     Dates: start: 20070417
  3. SYNTHROID [Concomitant]
     Route: 065
     Dates: start: 19970101
  4. LEXAPRO [Concomitant]
     Dosage: 20 MG, UNK
     Route: 048
     Dates: start: 20070417
  5. HYDROCHLOROTHIAZIDE [Concomitant]
     Dosage: 25 MG, UNK
     Route: 048
     Dates: start: 20070613
  6. ANTIBIOTICS [Concomitant]
     Route: 065
  7. GUAIFENESIN [Concomitant]
     Dosage: 400 MG, UNK
     Route: 048
     Dates: start: 20070321
  8. FLUCONAZOLE [Concomitant]
     Dosage: 150 MG, UNK
     Route: 048
     Dates: start: 20070326
  9. YASMIN [Suspect]
     Indication: OVARIAN DISORDER
     Route: 048
     Dates: start: 20061201, end: 20070601

REACTIONS (4)
  - PULMONARY EMBOLISM [None]
  - FLANK PAIN [None]
  - DISCOMFORT [None]
  - PLEURITIC PAIN [None]
